FAERS Safety Report 24365499 (Version 1)
Quarter: 2024Q3

REPORT INFORMATION
  Report Type: Spontaneous
  Country: IQ (occurrence: IQ)
  Receive Date: 20240926
  Receipt Date: 20240926
  Transmission Date: 20241016
  Serious: Yes (Death)
  Sender: STRIDES
  Company Number: IQ-STRIDES ARCOLAB LIMITED-2024SP012303

PATIENT
  Sex: Male

DRUGS (8)
  1. DOXORUBICIN [Suspect]
     Active Substance: DOXORUBICIN
     Indication: Hodgkin^s disease
     Dosage: 25 MILLIGRAM/SQ. METER, CYCLICAL (PART OF ABVD REGIMEN; ON THE DAY1 AND DAY15; ABVD CYCLE REPEATED E
     Route: 042
  2. PREDNISOLONE [Suspect]
     Active Substance: PREDNISOLONE
     Indication: Hodgkin^s disease
     Dosage: 40 MILLIGRAM/SQ. METER, QD (PART OF COPDAC REGIMEN; FROM DAYS1?14; EVERY 3 WEEKS)
     Route: 048
  3. DACARBAZINE [Suspect]
     Active Substance: DACARBAZINE
     Indication: Hodgkin^s disease
     Dosage: 375 MILLIGRAM/SQ. METER, CYCLICAL (ON THE DAY1 AND DAY15; ABVD CYCLE REPEATED EVERY FOUR WEEKS)
     Route: 042
  4. DACARBAZINE [Suspect]
     Active Substance: DACARBAZINE
     Dosage: 250 MILLIGRAM/SQ. METER, QD, (PART OF COPDAC REGIMEN; FROM DAYS 1-3; EVERY 3 WEEKS)
     Route: 065
  5. BLEOMYCIN [Suspect]
     Active Substance: BLEOMYCIN SULFATE
     Indication: Hodgkin^s disease
     Dosage: UNK, CYCLICAL (10 UNITS/M2; ON THE DAY1 AND DAY15; ABVD CYCLE REPEATED EVERY FOUR WEEKS)
     Route: 042
  6. VINBLASTINE [Suspect]
     Active Substance: VINBLASTINE
     Indication: Hodgkin^s disease
     Dosage: 6 MILLIGRAM/SQ. METER, CYCLICAL (ON THE DAY1 AND DAY15; ABVD CYCLE REPEATED EVERY FOUR WEEKS)
     Route: 042
  7. VINCRISTINE [Suspect]
     Active Substance: VINCRISTINE
     Indication: Hodgkin^s disease
     Dosage: 1.4 MILLIGRAM/SQ. METER, CYCLICAL (PART OF COPDAC REGIMEN; ON DAY 1?AND DAY 8; EVERY 3 WEEKS)
     Route: 065
  8. CYCLOPHOSPHAMIDE [Suspect]
     Active Substance: CYCLOPHOSPHAMIDE
     Indication: Hodgkin^s disease
     Dosage: 600 MILLIGRAM/SQ. METER, CYCLICAL (PART OF COPDAC REGIMEN; ON DAY 1?AND DAY 8; EVERY 3 WEEKS)
     Route: 042

REACTIONS (2)
  - Therapy non-responder [Fatal]
  - Malignant neoplasm progression [Fatal]
